FAERS Safety Report 4983033-6 (Version None)
Quarter: 2006Q2

REPORT INFORMATION
  Report Type: 
  Country: None (occurrence: None)
  Receive Date: 20060420
  Receipt Date: 20060412
  Transmission Date: 20061013
  Serious: Yes (Other)
  Sender: FDA-Public Use
  Company Number: 2006051665

PATIENT
  Age: 47 Year
  Sex: Male
  Weight: 90.7194 kg

DRUGS (3)
  1. NEURONTIN [Suspect]
     Indication: NEURALGIA
     Dates: start: 20050101, end: 20060403
  2. LYRICA [Suspect]
     Indication: BURNING SENSATION
     Dosage: 150 MG (50 MG, 3 IN 1 D) ORAL
     Route: 048
  3. METHADONE HCL [Concomitant]

REACTIONS (12)
  - ACTIVITIES OF DAILY LIVING IMPAIRED [None]
  - BURNING SENSATION [None]
  - CONDITION AGGRAVATED [None]
  - DEPRESSION [None]
  - DRUG INEFFECTIVE [None]
  - HYPERTENSION [None]
  - HYPOAESTHESIA [None]
  - NEURALGIA [None]
  - NEUROPATHY [None]
  - POST PROCEDURAL COMPLICATION [None]
  - SPINAL CORD NEOPLASM [None]
  - SUICIDAL IDEATION [None]
